FAERS Safety Report 17528915 (Version 3)
Quarter: 2021Q2

REPORT INFORMATION
  Report Type: Report from Study
  Country: None (occurrence: CA)
  Receive Date: 20200311
  Receipt Date: 20210417
  Transmission Date: 20210716
  Serious: No
  Sender: FDA-Public Use
  Company Number: CA-ABBVIE-20K-028-3311763-00

PATIENT
  Sex: Female

DRUGS (1)
  1. HUMIRA [Suspect]
     Active Substance: ADALIMUMAB
     Indication: RHEUMATOID ARTHRITIS
     Route: 058
     Dates: start: 20191205

REACTIONS (2)
  - Headache [Not Recovered/Not Resolved]
  - Peripheral swelling [Unknown]
